FAERS Safety Report 8834778 (Version 1)
Quarter: 2012Q4

REPORT INFORMATION
  Report Type: Spontaneous
  Country: DK (occurrence: None)
  Receive Date: 20121009
  Receipt Date: 20121009
  Transmission Date: 20130627
  Serious: Yes (Congenital Anomaly)
  Sender: FDA-Public Use
  Company Number: 2012MA011862

PATIENT
  Age: 0 Day
  Sex: Female

DRUGS (1)
  1. FLUOXETINE [Suspect]
     Route: 064

REACTIONS (1)
  - Craniosynostosis [None]
